FAERS Safety Report 23568751 (Version 1)
Quarter: 2024Q1

REPORT INFORMATION
  Report Type: Spontaneous
  Country: GB (occurrence: GB)
  Receive Date: 20240227
  Receipt Date: 20240227
  Transmission Date: 20240409
  Serious: Yes (Other)
  Sender: FDA-Public Use
  Company Number: GB-MHRA-MED-202402130929162280-LZYHT

PATIENT
  Age: 20 Year
  Sex: Male
  Weight: 71 kg

DRUGS (1)
  1. ARIPIPRAZOLE [Suspect]
     Active Substance: ARIPIPRAZOLE
     Indication: Psychotic disorder
     Dosage: 5 MILLIGRAM, TWO TIMES A DAY
     Route: 065
     Dates: start: 202311

REACTIONS (1)
  - Hypoprolactinaemia [Not Recovered/Not Resolved]

NARRATIVE: CASE EVENT DATE: 20231101
